FAERS Safety Report 7809730-2 (Version None)
Quarter: 2011Q4

REPORT INFORMATION
  Report Type: 
  Country: None (occurrence: None)
  Receive Date: 20111012
  Receipt Date: 20111003
  Transmission Date: 20120403
  Serious: Yes (Hospitalization)
  Sender: FDA-Public Use
  Company Number: US-GLAXOSMITHKLINE-Z0004343E

PATIENT
  Age: 59 Year
  Sex: Female

DRUGS (1)
  1. OFATUMUMAB [Suspect]
     Indication: WALDENSTROM'S MACROGLOBULINAEMIA
     Route: 042
     Dates: start: 20090922

REACTIONS (1)
  - CRYOGLOBULINAEMIA [None]
